FAERS Safety Report 12648133 (Version 1)
Quarter: 2016Q3

REPORT INFORMATION
  Report Type: Report from Study
  Country: BR (occurrence: BR)
  Receive Date: 20160812
  Receipt Date: 20160812
  Transmission Date: 20161109
  Serious: Yes (Death)
  Sender: FDA-Public Use
  Company Number: PHHY2016BR110630

PATIENT
  Sex: Male

DRUGS (1)
  1. EXELON PATCH [Suspect]
     Active Substance: RIVASTIGMINE
     Indication: DEPRESSED MOOD
     Dosage: QD
     Route: 062
     Dates: start: 2015, end: 201512

REACTIONS (3)
  - Product use issue [Unknown]
  - Fall [Fatal]
  - Cerebral thrombosis [Fatal]
